FAERS Safety Report 11045674 (Version 1)
Quarter: 2015Q2

REPORT INFORMATION
  Report Type: Spontaneous
  Country: US (occurrence: US)
  Receive Date: 20150417
  Receipt Date: 20150417
  Transmission Date: 20150821
  Serious: Yes (Other)
  Sender: FDA-Public Use
  Company Number: PR-ASTRAZENECA-2015SE34731

PATIENT
  Age: 85 Year
  Sex: Male

DRUGS (2)
  1. PLETAL [Suspect]
     Active Substance: CILOSTAZOL
     Indication: STENT PLACEMENT
     Dosage: UNKNOWN
     Route: 065
  2. BRILINTA [Suspect]
     Active Substance: TICAGRELOR
     Indication: STENT PLACEMENT
     Route: 048

REACTIONS (3)
  - Thrombosis in device [Unknown]
  - Intentional product misuse [Unknown]
  - Product use issue [Unknown]
